FAERS Safety Report 11454531 (Version 1)
Quarter: 2015Q3

REPORT INFORMATION
  Report Type: Spontaneous
  Country: PT (occurrence: PT)
  Receive Date: 20150903
  Receipt Date: 20150903
  Transmission Date: 20151125
  Serious: Yes (Hospitalization)
  Sender: FDA-Public Use
  Company Number: PT-GILEAD-2015-0169515

PATIENT
  Age: 48 Year
  Sex: Male
  Weight: 70 kg

DRUGS (3)
  1. HARVONI [Suspect]
     Active Substance: LEDIPASVIR\SOFOSBUVIR
     Indication: PRODUCT USED FOR UNKNOWN INDICATION
     Dosage: 1 DF, QD
     Route: 048
     Dates: start: 20150713
  2. QUETIAPINA [Concomitant]
     Active Substance: QUETIAPINE
     Indication: DEPENDENCE
     Route: 048
  3. METADONA [Concomitant]
     Active Substance: METHADONE HYDROCHLORIDE
     Indication: DRUG DEPENDENCE
     Route: 048

REACTIONS (3)
  - Paraesthesia [Recovered/Resolved]
  - Peripheral nerve paresis [Recovered/Resolved]
  - Mobility decreased [Recovered/Resolved]

NARRATIVE: CASE EVENT DATE: 20150802
